FAERS Safety Report 18417006 (Version 2)
Quarter: 2021Q1

REPORT INFORMATION
  Report Type: Spontaneous
  Country: ES (occurrence: ES)
  Receive Date: 20201022
  Receipt Date: 20210108
  Transmission Date: 20210419
  Serious: Yes (Other)
  Sender: FDA-Public Use
  Company Number: NVSC2020ES280296

PATIENT
  Age: 71 Year
  Sex: Male
  Weight: 67 kg

DRUGS (17)
  1. ACETYLSALICYLIC ACID [Concomitant]
     Active Substance: ASPIRIN
     Indication: CARDIOVASCULAR EVENT PROPHYLAXIS
     Dosage: UNK
     Route: 065
     Dates: start: 20190710
  2. OMEPRAZOLE. [Concomitant]
     Active Substance: OMEPRAZOLE
     Indication: PROPHYLAXIS AGAINST GASTROINTESTINAL ULCER
     Dosage: UNK
     Route: 065
     Dates: start: 20190712
  3. BASILIXIMAB [Suspect]
     Active Substance: BASILIXIMAB
     Dosage: 20 MG, QD
     Route: 065
     Dates: start: 20200108, end: 20200108
  4. ENVARSUS XR [Suspect]
     Active Substance: TACROLIMUS
     Indication: IMMUNOSUPPRESSION
     Dosage: 4 MG, QD
     Route: 048
     Dates: start: 20200106, end: 20200108
  5. BASILIXIMAB [Suspect]
     Active Substance: BASILIXIMAB
     Indication: IMMUNOSUPPRESSION
     Dosage: 20 MILLIGRAM, QD
     Route: 065
     Dates: start: 20200104, end: 20200104
  6. ENVARSUS XR [Suspect]
     Active Substance: TACROLIMUS
     Dosage: 1.5 MILLIGRAM, QD
     Route: 048
     Dates: start: 20200115, end: 20200212
  7. CICLOSPORIN [Concomitant]
     Active Substance: CYCLOSPORINE
     Indication: PRODUCT USED FOR UNKNOWN INDICATION
     Dosage: UNK
     Route: 065
     Dates: start: 20200217
  8. MYCOPHENOLATE MOFETIL. [Suspect]
     Active Substance: MYCOPHENOLATE MOFETIL
     Indication: IMMUNOSUPPRESSION
     Dosage: 1000 MG, QD
     Route: 065
     Dates: start: 20200104, end: 20200105
  9. ENVARSUS XR [Suspect]
     Active Substance: TACROLIMUS
     Dosage: 75 MG, QD
     Route: 048
     Dates: start: 20200106, end: 20200216
  10. ENVARSUS XR [Suspect]
     Active Substance: TACROLIMUS
     Dosage: 3 MG
     Route: 048
     Dates: start: 20200109, end: 20200109
  11. MYCOPHENOLATE MOFETIL. [Suspect]
     Active Substance: MYCOPHENOLATE MOFETIL
     Dosage: 2000 MILLIGRAM, QD
     Route: 065
     Dates: start: 20200106
  12. ENVARSUS XR [Suspect]
     Active Substance: TACROLIMUS
     Dosage: 2 MG, QD
     Route: 048
     Dates: start: 20200110, end: 20200114
  13. AMLODIPINE KN [Concomitant]
     Indication: HYPERTENSION
     Dosage: UNK
     Route: 065
     Dates: start: 20200115
  14. ISONIAZID. [Concomitant]
     Active Substance: ISONIAZID
     Indication: INFECTION PROPHYLAXIS
     Dosage: UNK
     Route: 065
     Dates: start: 20200115
  15. ENVARSUS XR [Suspect]
     Active Substance: TACROLIMUS
     Dosage: 1.75 MG, QD
     Route: 048
     Dates: start: 20200213, end: 20200216
  16. CALCITRIOL. [Concomitant]
     Active Substance: CALCITRIOL
     Indication: VITAMIN D DEFICIENCY
     Dosage: UNK
     Route: 065
     Dates: start: 20200115
  17. COTRIMOXAZOLE [Concomitant]
     Active Substance: SULFAMETHOXAZOLE\TRIMETHOPRIM
     Indication: ANTIBIOTIC PROPHYLAXIS
     Dosage: UNK
     Route: 065
     Dates: start: 20200115

REACTIONS (4)
  - Renal tubular injury [Recovered/Resolved]
  - Toxicity to various agents [Recovered/Resolved]
  - Glomerulosclerosis [Recovered/Resolved with Sequelae]
  - Renal tubular necrosis [Recovered/Resolved]

NARRATIVE: CASE EVENT DATE: 20200127
